FAERS Safety Report 6085753-1 (Version None)
Quarter: 2009Q1

REPORT INFORMATION
  Report Type: 
  Country: None (occurrence: None)
  Receive Date: 20090220
  Receipt Date: 20090205
  Transmission Date: 20090719
  Serious: Yes (Hospitalization)
  Sender: FDA-Public Use
  Company Number: FR-GENENTECH-271197

PATIENT
  Sex: Male

DRUGS (5)
  1. MABTHERA [Suspect]
     Indication: ANAEMIA HAEMOLYTIC AUTOIMMUNE
     Dosage: 700 MG, 1/WEEK
     Route: 042
     Dates: start: 20081009, end: 20081030
  2. IMOVANE [Concomitant]
     Indication: DRUG USE FOR UNKNOWN INDICATION
  3. N-ACETYL-ASPARTYL-GLUTAMIC ACID SODIUM [Concomitant]
     Indication: DRUG USE FOR UNKNOWN INDICATION
  4. XALACOM [Concomitant]
     Indication: DRUG USE FOR UNKNOWN INDICATION
  5. PERMIXON [Concomitant]
     Indication: DRUG USE FOR UNKNOWN INDICATION

REACTIONS (2)
  - PHLEBITIS [None]
  - PULMONARY EMBOLISM [None]
